FAERS Safety Report 4311629-3 (Version None)
Quarter: 2004Q1

REPORT INFORMATION
  Report Type: 
  Country: None (occurrence: None)
  Receive Date: 20040303
  Receipt Date: 20040303
  Transmission Date: 20041129
  Serious: Yes (Life-Threatening, Hospitalization)
  Sender: FDA-Public Use
  Company Number: None

PATIENT
  Sex: Female
  Weight: 87 kg

DRUGS (8)
  1. LEVAQUIN [Suspect]
     Indication: DIVERTICULITIS
     Dates: start: 20040127, end: 20040130
  2. LORAZEPAM [Concomitant]
  3. ZEBETA [Concomitant]
  4. ATARAX [Concomitant]
  5. PREDNISONE [Concomitant]
  6. RISPERDAL [Concomitant]
  7. KCL TAB [Concomitant]
  8. LASIX [Concomitant]

REACTIONS (13)
  - CANDIDURIA [None]
  - CARDIAC FAILURE CONGESTIVE [None]
  - DIALYSIS [None]
  - ERYTHEMA [None]
  - FLUID OVERLOAD [None]
  - HYPOTENSION [None]
  - PERICARDIAL EFFUSION [None]
  - PLEURAL EFFUSION [None]
  - PYREXIA [None]
  - RENAL FAILURE ACUTE [None]
  - TOXIC SHOCK SYNDROME [None]
  - TRICUSPID VALVE INCOMPETENCE [None]
  - WHITE BLOOD CELL COUNT INCREASED [None]
